FAERS Safety Report 7131145-3 (Version None)
Quarter: 2010Q4

REPORT INFORMATION
  Report Type: 
  Country: None (occurrence: None)
  Receive Date: 20101201
  Receipt Date: 20101124
  Transmission Date: 20110411
  Serious: Yes (Life-Threatening, Hospitalization)
  Sender: FDA-Public Use
  Company Number: US-ROXANE LABORATORIES, INC.-2010-RO-01554RO

PATIENT
  Age: 40 Year
  Sex: Female

DRUGS (2)
  1. ZOLPIDEM [Suspect]
  2. PRENATAL VITAMINS [Suspect]

REACTIONS (4)
  - BRAIN STEM SYNDROME [None]
  - COMA [None]
  - OVERDOSE [None]
  - RESPIRATORY FAILURE [None]
